FAERS Safety Report 8085409-X (Version None)
Quarter: 2012Q1

REPORT INFORMATION
  Report Type: 
  Country: None (occurrence: None)
  Receive Date: 20120128
  Receipt Date: 20110525
  Transmission Date: 20120608
  Serious: No
  Sender: FDA-Public Use
  Company Number: PR-ABBOTT-11P-131-0729562-00

PATIENT
  Sex: Male

DRUGS (8)
  1. CRESTOR [Concomitant]
     Indication: BLOOD CHOLESTEROL
  2. AVAPRO [Concomitant]
     Indication: HYPERTENSION
     Route: 048
  3. METHOTREXATE [Concomitant]
     Indication: ANKYLOSING SPONDYLITIS
     Dosage: 0.8ML WEEKLY
  4. HUMIRA [Suspect]
     Indication: ANKYLOSING SPONDYLITIS
     Route: 058
  5. CEREFOLIN NAC [Concomitant]
     Indication: SUPPLEMENTATION THERAPY
     Route: 048
  6. ARICEPT [Concomitant]
     Indication: DEMENTIA ALZHEIMER'S TYPE
     Route: 048
  7. IMDUR [Concomitant]
     Indication: CARDIAC DISORDER
  8. FOLIC ACID [Concomitant]
     Indication: VITAMIN SUPPLEMENTATION
     Route: 048

REACTIONS (1)
  - DEMENTIA ALZHEIMER'S TYPE [None]
